FAERS Safety Report 19372712 (Version 5)
Quarter: 2022Q1

REPORT INFORMATION
  Report Type: Spontaneous
  Country: JP (occurrence: JP)
  Receive Date: 20210603
  Receipt Date: 20220302
  Transmission Date: 20220423
  Serious: Yes (Hospitalization, Other)
  Sender: FDA-Public Use
  Company Number: JP-JNJFOC-A-CH2018-168016

PATIENT
  Age: 11 Year
  Sex: Female

DRUGS (121)
  1. OPSUMIT [Suspect]
     Active Substance: MACITENTAN
     Indication: Pulmonary arterial hypertension
     Dosage: 10 MG, QD
     Route: 048
     Dates: start: 20170630, end: 20180123
  2. OPSUMIT [Suspect]
     Active Substance: MACITENTAN
     Dosage: 10 MG, QD
     Route: 048
     Dates: start: 20180124
  3. UPTRAVI [Suspect]
     Active Substance: SELEXIPAG
     Indication: Pulmonary arterial hypertension
     Dosage: 0.2 MG, BID
     Route: 048
     Dates: start: 20170726, end: 20170803
  4. UPTRAVI [Suspect]
     Active Substance: SELEXIPAG
     Dosage: 0.4 MG, BID
     Route: 048
     Dates: start: 20170804, end: 20170814
  5. UPTRAVI [Suspect]
     Active Substance: SELEXIPAG
     Dosage: 0.6 MG, BID
     Route: 048
     Dates: start: 20170815, end: 20170828
  6. UPTRAVI [Suspect]
     Active Substance: SELEXIPAG
     Dosage: 0.8 MG, BID
     Route: 048
     Dates: start: 20170829, end: 20170911
  7. UPTRAVI [Suspect]
     Active Substance: SELEXIPAG
     Dosage: 1 MG, BID
     Route: 048
     Dates: start: 20170912, end: 20170925
  8. UPTRAVI [Suspect]
     Active Substance: SELEXIPAG
     Dosage: 1.2 MG, BID
     Route: 048
     Dates: start: 20170926, end: 20171009
  9. UPTRAVI [Suspect]
     Active Substance: SELEXIPAG
     Dosage: 1.4 MG, BID
     Route: 048
     Dates: start: 20171010, end: 20171023
  10. UPTRAVI [Suspect]
     Active Substance: SELEXIPAG
     Dosage: 1.6 MG, BID
     Route: 048
     Dates: start: 20171024, end: 20180510
  11. EPOPROSTENOL [Suspect]
     Active Substance: EPOPROSTENOL
     Indication: Pulmonary arterial hypertension
     Dosage: 0.5 NG/KG, PER MIN
     Route: 041
     Dates: start: 20180511, end: 20180514
  12. EPOPROSTENOL [Suspect]
     Active Substance: EPOPROSTENOL
     Dosage: 4.7 NG/KG, PER MIN
     Route: 041
     Dates: start: 20180524
  13. EPOPROSTENOL [Suspect]
     Active Substance: EPOPROSTENOL
     Dosage: 7.2 NG/KG, PER MIN
     Route: 041
     Dates: start: 20180529
  14. EPOPROSTENOL [Suspect]
     Active Substance: EPOPROSTENOL
     Dosage: 10.3 NG/KG, PER MIN
     Route: 041
     Dates: start: 20180604
  15. EPOPROSTENOL [Suspect]
     Active Substance: EPOPROSTENOL
     Dosage: 10.7 NG/KG, PER MIN
     Route: 041
     Dates: start: 20180605
  16. EPOPROSTENOL [Suspect]
     Active Substance: EPOPROSTENOL
     Dosage: 12.7 NG/KG, PER MIN
     Route: 041
     Dates: start: 20180610
  17. EPOPROSTENOL [Suspect]
     Active Substance: EPOPROSTENOL
     Dosage: 17.4 NG/KG, PER MIN
     Route: 041
     Dates: start: 20180621
  18. EPOPROSTENOL [Suspect]
     Active Substance: EPOPROSTENOL
     Dosage: 22.4 NG/KG, PER MIN
     Route: 041
     Dates: start: 20180630
  19. EPOPROSTENOL [Suspect]
     Active Substance: EPOPROSTENOL
     Dosage: 0.5 NG/KG, PER MIN
     Route: 041
     Dates: start: 20180514, end: 20180516
  20. EPOPROSTENOL [Suspect]
     Active Substance: EPOPROSTENOL
     Dosage: 0.5 NG/KG, PER MIN
     Route: 041
     Dates: start: 20180516, end: 20180518
  21. EPOPROSTENOL [Suspect]
     Active Substance: EPOPROSTENOL
     Dosage: 0.5 NG/KG, PER MIN
     Route: 041
     Dates: start: 20180518, end: 20180520
  22. EPOPROSTENOL [Suspect]
     Active Substance: EPOPROSTENOL
     Dosage: 0.5 NG/KG, PER MIN
     Route: 041
     Dates: start: 20180520, end: 20180521
  23. EPOPROSTENOL [Suspect]
     Active Substance: EPOPROSTENOL
     Dosage: 0.5 NG/KG, PER MIN
     Route: 041
     Dates: start: 20180521, end: 20180522
  24. EPOPROSTENOL [Suspect]
     Active Substance: EPOPROSTENOL
     Dosage: 0.5 NG/KG, PER MIN
     Route: 041
     Dates: start: 20180522, end: 20180523
  25. EPOPROSTENOL [Suspect]
     Active Substance: EPOPROSTENOL
     Dosage: 0.5 NG/KG, PER MIN
     Route: 041
     Dates: start: 20200521
  26. EPOPROSTENOL [Suspect]
     Active Substance: EPOPROSTENOL
     Route: 041
     Dates: start: 20180607, end: 20180608
  27. EPOPROSTENOL [Suspect]
     Active Substance: EPOPROSTENOL
     Route: 041
     Dates: start: 20180608, end: 20180609
  28. EPOPROSTENOL [Suspect]
     Active Substance: EPOPROSTENOL
     Route: 041
     Dates: start: 20180609, end: 20180610
  29. EPOPROSTENOL [Suspect]
     Active Substance: EPOPROSTENOL
     Route: 041
     Dates: start: 20180610, end: 20180612
  30. EPOPROSTENOL [Suspect]
     Active Substance: EPOPROSTENOL
     Route: 041
     Dates: start: 20180612, end: 20180613
  31. EPOPROSTENOL [Suspect]
     Active Substance: EPOPROSTENOL
     Route: 041
     Dates: start: 20180613, end: 20180615
  32. EPOPROSTENOL [Suspect]
     Active Substance: EPOPROSTENOL
     Route: 041
     Dates: start: 20180615, end: 20180616
  33. EPOPROSTENOL [Suspect]
     Active Substance: EPOPROSTENOL
     Route: 041
     Dates: start: 20180616, end: 20180617
  34. EPOPROSTENOL [Suspect]
     Active Substance: EPOPROSTENOL
     Route: 041
     Dates: start: 20180617, end: 20180618
  35. EPOPROSTENOL [Suspect]
     Active Substance: EPOPROSTENOL
     Route: 041
     Dates: start: 20180618, end: 20180619
  36. EPOPROSTENOL [Suspect]
     Active Substance: EPOPROSTENOL
     Route: 041
     Dates: start: 20180619, end: 20180620
  37. EPOPROSTENOL [Suspect]
     Active Substance: EPOPROSTENOL
     Route: 041
     Dates: start: 20180620, end: 20180621
  38. EPOPROSTENOL [Suspect]
     Active Substance: EPOPROSTENOL
     Route: 041
     Dates: start: 20180621, end: 20180622
  39. EPOPROSTENOL [Suspect]
     Active Substance: EPOPROSTENOL
     Route: 041
     Dates: start: 20180622, end: 20180623
  40. EPOPROSTENOL [Suspect]
     Active Substance: EPOPROSTENOL
     Route: 041
     Dates: start: 20180623, end: 20180624
  41. EPOPROSTENOL [Suspect]
     Active Substance: EPOPROSTENOL
     Route: 041
     Dates: start: 20180624, end: 20180625
  42. EPOPROSTENOL [Suspect]
     Active Substance: EPOPROSTENOL
     Route: 041
     Dates: start: 20180625, end: 20180626
  43. EPOPROSTENOL [Suspect]
     Active Substance: EPOPROSTENOL
     Route: 041
     Dates: start: 20180626, end: 20180628
  44. EPOPROSTENOL [Suspect]
     Active Substance: EPOPROSTENOL
     Route: 041
     Dates: start: 20180628, end: 20180629
  45. EPOPROSTENOL [Suspect]
     Active Substance: EPOPROSTENOL
     Route: 041
     Dates: start: 20180629, end: 20180630
  46. EPOPROSTENOL [Suspect]
     Active Substance: EPOPROSTENOL
     Route: 041
     Dates: start: 20180630, end: 20180702
  47. EPOPROSTENOL [Suspect]
     Active Substance: EPOPROSTENOL
     Route: 041
     Dates: start: 20180702, end: 20180704
  48. EPOPROSTENOL [Suspect]
     Active Substance: EPOPROSTENOL
     Route: 041
     Dates: start: 20180704, end: 20180706
  49. EPOPROSTENOL [Suspect]
     Active Substance: EPOPROSTENOL
     Route: 041
     Dates: start: 20180706, end: 20180708
  50. EPOPROSTENOL [Suspect]
     Active Substance: EPOPROSTENOL
     Route: 041
     Dates: start: 20180708, end: 20180710
  51. EPOPROSTENOL [Suspect]
     Active Substance: EPOPROSTENOL
     Route: 041
     Dates: start: 20180710, end: 20180712
  52. EPOPROSTENOL [Suspect]
     Active Substance: EPOPROSTENOL
     Route: 041
     Dates: start: 20180712, end: 20180714
  53. EPOPROSTENOL [Suspect]
     Active Substance: EPOPROSTENOL
     Route: 041
     Dates: start: 20180714, end: 20180718
  54. EPOPROSTENOL [Suspect]
     Active Substance: EPOPROSTENOL
     Route: 041
     Dates: start: 20180718, end: 20180720
  55. EPOPROSTENOL [Suspect]
     Active Substance: EPOPROSTENOL
     Route: 041
     Dates: start: 20180720, end: 20180726
  56. EPOPROSTENOL [Suspect]
     Active Substance: EPOPROSTENOL
     Route: 041
     Dates: start: 20180726, end: 20180730
  57. EPOPROSTENOL [Suspect]
     Active Substance: EPOPROSTENOL
     Route: 041
     Dates: start: 20180730, end: 20180803
  58. EPOPROSTENOL [Suspect]
     Active Substance: EPOPROSTENOL
     Route: 041
     Dates: start: 20180803, end: 20180818
  59. EPOPROSTENOL [Suspect]
     Active Substance: EPOPROSTENOL
     Route: 041
     Dates: start: 20180818, end: 20180823
  60. EPOPROSTENOL [Suspect]
     Active Substance: EPOPROSTENOL
     Route: 041
     Dates: start: 20180823, end: 20180908
  61. EPOPROSTENOL [Suspect]
     Active Substance: EPOPROSTENOL
     Route: 041
     Dates: start: 20180908, end: 20181005
  62. EPOPROSTENOL [Suspect]
     Active Substance: EPOPROSTENOL
     Route: 041
     Dates: start: 20181005, end: 20181012
  63. EPOPROSTENOL [Suspect]
     Active Substance: EPOPROSTENOL
     Route: 041
     Dates: start: 20181012, end: 20181021
  64. EPOPROSTENOL [Suspect]
     Active Substance: EPOPROSTENOL
     Route: 041
     Dates: start: 20181021, end: 20181026
  65. EPOPROSTENOL [Suspect]
     Active Substance: EPOPROSTENOL
     Route: 041
     Dates: start: 20181026, end: 20181101
  66. EPOPROSTENOL [Suspect]
     Active Substance: EPOPROSTENOL
     Route: 041
     Dates: start: 20181101, end: 20181104
  67. EPOPROSTENOL [Suspect]
     Active Substance: EPOPROSTENOL
     Route: 041
     Dates: start: 20181104, end: 20181117
  68. FENTANYL CITRATE [Suspect]
     Active Substance: FENTANYL CITRATE
     Indication: Anaesthesia procedure
     Dosage: 0.1 MG, OD
     Route: 042
     Dates: start: 20180614, end: 20180614
  69. FENTANYL CITRATE [Suspect]
     Active Substance: FENTANYL CITRATE
     Dosage: 0.1 MG, OD
     Route: 042
     Dates: start: 20190131, end: 20190131
  70. ULTIVA [Suspect]
     Active Substance: REMIFENTANIL HYDROCHLORIDE
     Indication: Anaesthesia procedure
     Dosage: 2 MG, OD
     Route: 042
     Dates: start: 20180614, end: 20180614
  71. ADCIRCA [Concomitant]
     Active Substance: TADALAFIL
  72. METILDIGOXIN [Concomitant]
     Active Substance: METILDIGOXIN
  73. ZOLPIDEM TARTRATE [Concomitant]
     Active Substance: ZOLPIDEM TARTRATE
     Dates: start: 20170725, end: 20170725
  74. ZOLPIDEM TARTRATE [Concomitant]
     Active Substance: ZOLPIDEM TARTRATE
     Dates: start: 20180328, end: 20180328
  75. ZOLPIDEM TARTRATE [Concomitant]
     Active Substance: ZOLPIDEM TARTRATE
     Dates: start: 20190722, end: 20190722
  76. MEPERIDINE HYDROCHLORIDE [Concomitant]
     Active Substance: MEPERIDINE HYDROCHLORIDE
     Indication: Anaesthesia procedure
     Route: 042
     Dates: start: 20170725, end: 20170725
  77. MEPERIDINE HYDROCHLORIDE [Concomitant]
     Active Substance: MEPERIDINE HYDROCHLORIDE
     Route: 042
     Dates: start: 20180328, end: 20180328
  78. MEPERIDINE HYDROCHLORIDE [Concomitant]
     Active Substance: MEPERIDINE HYDROCHLORIDE
     Route: 042
     Dates: start: 20180722, end: 20180722
  79. HYDROXYZINE HYDROCHLORIDE [Concomitant]
     Active Substance: HYDROXYZINE HYDROCHLORIDE
     Indication: Anaesthesia procedure
     Route: 042
     Dates: start: 20170725, end: 20170725
  80. HYDROXYZINE HYDROCHLORIDE [Concomitant]
     Active Substance: HYDROXYZINE HYDROCHLORIDE
     Route: 042
     Dates: start: 20180328, end: 20180328
  81. HYDROXYZINE HYDROCHLORIDE [Concomitant]
     Active Substance: HYDROXYZINE HYDROCHLORIDE
     Route: 042
     Dates: start: 20190722, end: 20190722
  82. SOLDEM 3A [Concomitant]
     Active Substance: CARBOHYDRATES\POTASSIUM CHLORIDE\SODIUM CHLORIDE\SODIUM LACTATE
     Indication: Fluid replacement
     Route: 042
     Dates: start: 20170725, end: 20170726
  83. SOLDEM 3A [Concomitant]
     Active Substance: CARBOHYDRATES\POTASSIUM CHLORIDE\SODIUM CHLORIDE\SODIUM LACTATE
     Indication: Infusion
     Route: 042
     Dates: start: 20180328, end: 20180329
  84. SOLDEM 3A [Concomitant]
     Active Substance: CARBOHYDRATES\POTASSIUM CHLORIDE\SODIUM CHLORIDE\SODIUM LACTATE
     Indication: Vomiting
     Route: 042
     Dates: start: 20180615, end: 20180615
  85. SOLDEM 3A [Concomitant]
     Active Substance: CARBOHYDRATES\POTASSIUM CHLORIDE\SODIUM CHLORIDE\SODIUM LACTATE
     Route: 042
     Dates: start: 20180616, end: 20180616
  86. SOLDEM 3A [Concomitant]
     Active Substance: CARBOHYDRATES\POTASSIUM CHLORIDE\SODIUM CHLORIDE\SODIUM LACTATE
     Route: 042
     Dates: start: 20180722, end: 20180723
  87. SOLDEM 3A [Concomitant]
     Active Substance: CARBOHYDRATES\POTASSIUM CHLORIDE\SODIUM CHLORIDE\SODIUM LACTATE
     Route: 042
     Dates: start: 20190127, end: 20190128
  88. SOLDEM 3A [Concomitant]
     Active Substance: CARBOHYDRATES\POTASSIUM CHLORIDE\SODIUM CHLORIDE\SODIUM LACTATE
     Route: 042
     Dates: start: 20190128, end: 20190205
  89. SOLDEM 3A [Concomitant]
     Active Substance: CARBOHYDRATES\POTASSIUM CHLORIDE\SODIUM CHLORIDE\SODIUM LACTATE
     Route: 042
     Dates: start: 20190128, end: 20190205
  90. SOLDEM 3A [Concomitant]
     Active Substance: CARBOHYDRATES\POTASSIUM CHLORIDE\SODIUM CHLORIDE\SODIUM LACTATE
     Route: 042
     Dates: start: 20190205, end: 20190208
  91. SOLDEM 3A [Concomitant]
     Active Substance: CARBOHYDRATES\POTASSIUM CHLORIDE\SODIUM CHLORIDE\SODIUM LACTATE
     Route: 042
     Dates: start: 20190131, end: 20190201
  92. SOLDEM 3A [Concomitant]
     Active Substance: CARBOHYDRATES\POTASSIUM CHLORIDE\SODIUM CHLORIDE\SODIUM LACTATE
     Route: 042
     Dates: start: 20190923, end: 20190923
  93. SOLDEM 3A [Concomitant]
     Active Substance: CARBOHYDRATES\POTASSIUM CHLORIDE\SODIUM CHLORIDE\SODIUM LACTATE
     Route: 042
     Dates: start: 20200524, end: 20200524
  94. SOLDEM 3A [Concomitant]
     Active Substance: CARBOHYDRATES\POTASSIUM CHLORIDE\SODIUM CHLORIDE\SODIUM LACTATE
     Route: 042
     Dates: start: 20200525, end: 20200525
  95. SOLDEM 3A [Concomitant]
     Active Substance: CARBOHYDRATES\POTASSIUM CHLORIDE\SODIUM CHLORIDE\SODIUM LACTATE
     Route: 042
     Dates: start: 20200526, end: 20200526
  96. SOLDEM 3A [Concomitant]
     Active Substance: CARBOHYDRATES\POTASSIUM CHLORIDE\SODIUM CHLORIDE\SODIUM LACTATE
     Route: 042
     Dates: start: 20200527, end: 20200527
  97. CEFAZOLIN [Concomitant]
     Active Substance: CEFAZOLIN
     Indication: Infection prophylaxis
     Route: 042
     Dates: start: 20170725, end: 20170725
  98. CEFAZOLIN [Concomitant]
     Active Substance: CEFAZOLIN
     Indication: Device related infection
     Route: 042
     Dates: start: 20180328, end: 20180328
  99. CEFAZOLIN [Concomitant]
     Active Substance: CEFAZOLIN
     Route: 042
     Dates: start: 20180614, end: 20180614
  100. CEFAZOLIN [Concomitant]
     Active Substance: CEFAZOLIN
     Route: 042
     Dates: start: 20180615, end: 20180616
  101. CEFAZOLIN [Concomitant]
     Active Substance: CEFAZOLIN
     Route: 042
     Dates: start: 20180131, end: 20180131
  102. CEFAZOLIN [Concomitant]
     Active Substance: CEFAZOLIN
     Route: 042
     Dates: start: 20190201, end: 20190202
  103. CEFAZOLIN [Concomitant]
     Active Substance: CEFAZOLIN
     Route: 042
     Dates: start: 20190203, end: 20190203
  104. CEFAZOLIN [Concomitant]
     Active Substance: CEFAZOLIN
     Route: 042
     Dates: start: 20190204, end: 20190207
  105. CEFAZOLIN [Concomitant]
     Active Substance: CEFAZOLIN
     Route: 042
     Dates: start: 20190208, end: 20190208
  106. MIDAZOLAM [Concomitant]
     Active Substance: MIDAZOLAM
     Indication: Anaesthesia procedure
     Route: 042
     Dates: start: 20170725, end: 20170725
  107. OXYGEN [Concomitant]
     Active Substance: OXYGEN
     Route: 055
  108. THIAMYLAL SODIUM [Concomitant]
     Active Substance: THIAMYLAL SODIUM
     Indication: Anaesthesia procedure
     Dosage: 15MGX4TIMES20MGX4TIME/DAY
     Route: 042
     Dates: start: 20180328, end: 20180328
  109. THIAMYLAL SODIUM [Concomitant]
     Active Substance: THIAMYLAL SODIUM
     Dosage: 23MGX3TIMES50MGX1TIME/DAY
     Route: 042
     Dates: start: 20190722, end: 20190722
  110. ISOTONIC SODIUM CHLORIDE SOLUTION [Concomitant]
     Active Substance: SODIUM CHLORIDE
     Indication: Medication dilution
     Route: 042
     Dates: start: 20180328, end: 20180328
  111. ISOTONIC SODIUM CHLORIDE SOLUTION [Concomitant]
     Active Substance: SODIUM CHLORIDE
     Indication: Infusion
     Route: 042
     Dates: start: 20190131, end: 20190208
  112. ISOTONIC SODIUM CHLORIDE SOLUTION [Concomitant]
     Active Substance: SODIUM CHLORIDE
     Route: 042
     Dates: start: 20190722, end: 20190722
  113. ISOTONIC SODIUM CHLORIDE SOLUTION [Concomitant]
     Active Substance: SODIUM CHLORIDE
     Route: 042
     Dates: start: 20190923, end: 20190923
  114. MORPHINE HYDROCHLORIDE [Concomitant]
     Active Substance: MORPHINE HYDROCHLORIDE
  115. VEEN D [Concomitant]
     Active Substance: CALCIUM CHLORIDE\DEXTROSE\POTASSIUM CHLORIDE\SODIUM ACETATE\SODIUM CHLORIDE
     Indication: Fluid replacement
     Route: 042
     Dates: start: 20180614, end: 20180614
  116. VEEN D [Concomitant]
     Active Substance: CALCIUM CHLORIDE\DEXTROSE\POTASSIUM CHLORIDE\SODIUM ACETATE\SODIUM CHLORIDE
     Indication: General anaesthesia
     Route: 042
     Dates: start: 20180614, end: 20180614
  117. VEEN D [Concomitant]
     Active Substance: CALCIUM CHLORIDE\DEXTROSE\POTASSIUM CHLORIDE\SODIUM ACETATE\SODIUM CHLORIDE
     Route: 042
     Dates: start: 20190131, end: 20190131
  118. SOLITA T [ELECTROLYTES NOS] [Concomitant]
     Indication: Fluid replacement
     Route: 042
     Dates: start: 20190125, end: 20190125
  119. SOLITA T [ELECTROLYTES NOS] [Concomitant]
     Indication: Vomiting
     Route: 042
     Dates: start: 20200523, end: 20200523
  120. DEXMEDETOMIDINE HYDROCHLORIDE [Concomitant]
     Active Substance: DEXMEDETOMIDINE HYDROCHLORIDE
     Indication: Anaesthesia procedure
     Route: 042
     Dates: start: 20190722, end: 20190722
  121. CLINDAMYCIN [Concomitant]
     Active Substance: CLINDAMYCIN
     Indication: Infection prophylaxis
     Route: 042
     Dates: start: 20190722, end: 20190722

REACTIONS (14)
  - Catheter placement [Unknown]
  - Device related infection [Recovered/Resolved]
  - Palpitations [Recovered/Resolved]
  - Vomiting [Recovered/Resolved]
  - Procedural vomiting [Recovering/Resolving]
  - Procedural pain [Recovered/Resolved]
  - Headache [Recovered/Resolved]
  - Urticaria [Recovered/Resolved]
  - Diarrhoea [Recovered/Resolved]
  - Platelet count decreased [Recovered/Resolved]
  - Nasopharyngitis [Recovered/Resolved]
  - Off label use [Unknown]
  - Hypochromic anaemia [Recovered/Resolved]
  - Catheter site infection [Recovered/Resolved]

NARRATIVE: CASE EVENT DATE: 20170721
